FAERS Safety Report 11101805 (Version 1)
Quarter: 2015Q2

REPORT INFORMATION
  Report Type: Spontaneous
  Country: IT (occurrence: IT)
  Receive Date: 20150509
  Receipt Date: 20150509
  Transmission Date: 20150821
  Serious: Yes (Death)
  Sender: FDA-Public Use
  Company Number: IT-ASTRAZENECA-2015SE40971

PATIENT
  Sex: Female

DRUGS (3)
  1. BRILIQUE [Suspect]
     Active Substance: TICAGRELOR
     Indication: ACUTE CORONARY SYNDROME
     Route: 048
     Dates: start: 20150426, end: 20150427
  2. SELEPARINE [Suspect]
     Active Substance: NADROPARIN CALCIUM
     Indication: PULMONARY EMBOLISM
     Route: 065
     Dates: start: 20150427, end: 20150427
  3. ASA [Suspect]
     Active Substance: ASPIRIN
     Indication: ACUTE CORONARY SYNDROME
     Route: 065
     Dates: start: 20150426, end: 20150427

REACTIONS (2)
  - Haemorrhage intracranial [Fatal]
  - Pulmonary embolism [Fatal]

NARRATIVE: CASE EVENT DATE: 20150427
